FAERS Safety Report 24725415 (Version 2)
Quarter: 2024Q4

REPORT INFORMATION
  Report Type: Spontaneous
  Country: US (occurrence: US)
  Receive Date: 20241212
  Receipt Date: 20241223
  Transmission Date: 20250115
  Serious: No
  Sender: ROCHE
  Company Number: US-ROCHE-10000152876

PATIENT
  Age: 24 Year
  Sex: Female

DRUGS (14)
  1. XOLAIR [Suspect]
     Active Substance: OMALIZUMAB
     Indication: Idiopathic urticaria
     Dosage: 300MG/2ML
     Route: 058
     Dates: start: 20240827
  2. XOLAIR [Suspect]
     Active Substance: OMALIZUMAB
     Dosage: 300MG/2ML
     Route: 058
     Dates: start: 20240930
  3. FAMOTIDINE [Concomitant]
     Active Substance: FAMOTIDINE
  4. LEVOCETIRIZINE [Concomitant]
     Active Substance: LEVOCETIRIZINE
  5. FEXOFENADINE [Concomitant]
     Active Substance: FEXOFENADINE HYDROCHLORIDE
  6. PREDNISONE (delatasone) [Concomitant]
     Route: 048
     Dates: start: 20241206, end: 20241211
  7. SLYND [Concomitant]
     Active Substance: DROSPIRENONE
     Route: 048
     Dates: start: 20230527
  8. EPIPEN [Concomitant]
     Active Substance: EPINEPHRINE
     Route: 030
     Dates: start: 20240820
  9. PEPCID [Concomitant]
     Active Substance: FAMOTIDINE
     Route: 048
     Dates: start: 20241121
  10. IMIPRAMINE (TOFRANIL) [Concomitant]
     Route: 048
  11. MECLIZINE [ANTIVERT] [Concomitant]
     Indication: Dizziness
     Dates: start: 20230127
  12. MECLIZINE [ANTIVERT] [Concomitant]
     Indication: Nausea
  13. SUMATRIPTAN (IMITREX) [Concomitant]
     Indication: Migraine
     Dosage: EVERY 2 HOURS AS NEEDED
     Dates: start: 20241127
  14. CETIRIZINE HYDROCHLORIDE [Concomitant]
     Active Substance: CETIRIZINE HYDROCHLORIDE
     Route: 048

REACTIONS (5)
  - Serum sickness [Recovered/Resolved]
  - Urticaria [Unknown]
  - Flushing [Recovered/Resolved]
  - Chest discomfort [Recovered/Resolved]
  - Diplopia [Recovered/Resolved]
